FAERS Safety Report 7793102-3 (Version None)
Quarter: 2011Q3

REPORT INFORMATION
  Report Type: 
  Country: None (occurrence: None)
  Receive Date: 20110929
  Receipt Date: 20110921
  Transmission Date: 20111222
  Serious: Yes (Hospitalization)
  Sender: FDA-Public Use
  Company Number: CIP11002318

PATIENT
  Age: 65 Year
  Sex: Female

DRUGS (2)
  1. CALCIUM+D (CALCIUM, ERGOCALCIFEROL) [Concomitant]
  2. ACTONEL [Suspect]
     Dosage: ORAL
     Route: 048

REACTIONS (4)
  - HYPERPARATHYROIDISM [None]
  - FALL [None]
  - ARRHYTHMIA [None]
  - HYPERCALCAEMIA [None]
